FAERS Safety Report 7184051-2 (Version None)
Quarter: 2010Q4

REPORT INFORMATION
  Report Type: 
  Country: None (occurrence: None)
  Receive Date: 20101222
  Receipt Date: 20101209
  Transmission Date: 20110411
  Serious: Yes (Other)
  Sender: FDA-Public Use
  Company Number: PHHY2010DE60851

PATIENT
  Age: 55 Year
  Sex: Female

DRUGS (3)
  1. ZOMETA [Suspect]
     Indication: BREAST CANCER
     Dosage: 4 MG EVERY 4 WEEKS
     Route: 042
  2. AROMASIN [Concomitant]
     Dosage: UNK
  3. CHEMOTHERAPEUTICS,OTHER [Concomitant]
     Indication: METASTASES TO LUNG
     Dosage: UNK
     Dates: start: 20100901

REACTIONS (5)
  - BRONCHITIS [None]
  - COUGH [None]
  - DYSPNOEA [None]
  - LUNG DISORDER [None]
  - METASTASES TO LUNG [None]
